FAERS Safety Report 9276361 (Version 1)
Quarter: 2012Q4

REPORT INFORMATION
  Report Type: 
  Country: US (occurrence: None)
  Receive Date: 20121109
  Receipt Date: 20121109
  Transmission Date: 20130627
  Serious: Yes (Death)
  Sender: FDA-Public Use
  Company Number: 2012S1000480

PATIENT

DRUGS (5)
  1. CUBICIN [Suspect]
     Indication: CHRONIC OSTEOMYELITIS
  2. CUBICIN [Suspect]
     Indication: BACTEREMIA
  3. SULFAMETHOXAZOLE\TRIMETHOPRIM [Suspect]
     Indication: CHRONIC OSTEOMYELITIS
  4. SULFAMETHOXAZOLE\TRIMETHOPRIM [Suspect]
     Indication: BACTEREMIA
  5. RIFAMPIN [Concomitant]

REACTIONS (1)
  - Blood creatinine increased [None]
